FAERS Safety Report 9428453 (Version 1)
Quarter: 2013Q3

REPORT INFORMATION
  Report Type: Report from Study
  Country: US (occurrence: US)
  Receive Date: 20130730
  Receipt Date: 20130730
  Transmission Date: 20140515
  Serious: No
  Sender: FDA-Public Use
  Company Number: US-ABBOTT-12P-163-1014656-00

PATIENT
  Sex: Female
  Weight: 65.83 kg

DRUGS (8)
  1. NIASPAN (COATED) [Suspect]
     Indication: VENOUS OCCLUSION
     Dates: start: 2010
  2. NIASPAN (COATED) [Suspect]
     Indication: ARTERIAL OCCLUSIVE DISEASE
  3. NIASPAN (COATED) [Suspect]
     Indication: VENOUS OCCLUSION
     Dosage: EVERY NIGHT
  4. NIASPAN (COATED) [Suspect]
     Indication: ARTERIAL OCCLUSIVE DISEASE
  5. ASPIRIN [Concomitant]
     Indication: PRODUCT USED FOR UNKNOWN INDICATION
  6. LIVALO [Concomitant]
     Indication: PRODUCT USED FOR UNKNOWN INDICATION
  7. QUINAPRIL [Concomitant]
     Indication: PRODUCT USED FOR UNKNOWN INDICATION
  8. HYDROCHLOROTHIAZIDE [Concomitant]
     Indication: PRODUCT USED FOR UNKNOWN INDICATION

REACTIONS (3)
  - Flushing [Not Recovered/Not Resolved]
  - Pruritus [Not Recovered/Not Resolved]
  - Burning sensation [Not Recovered/Not Resolved]
